FAERS Safety Report 17776238 (Version 11)
Quarter: 2023Q1

REPORT INFORMATION
  Report Type: Report from Study
  Country: US (occurrence: US)
  Receive Date: 20200513
  Receipt Date: 20230323
  Transmission Date: 20230417
  Serious: Yes (Hospitalization)
  Sender: FDA-Public Use
  Company Number: US-ACADIA PHARMACEUTICALS INC.-ACA-2019-013221

PATIENT
  Age: 78 Year
  Sex: Male

DRUGS (18)
  1. NUPLAZID [Suspect]
     Active Substance: PIMAVANSERIN TARTRATE
     Indication: Parkinson^s disease
     Dosage: 34 MG, QD
     Route: 048
     Dates: start: 20190214, end: 202005
  2. NUPLAZID [Suspect]
     Active Substance: PIMAVANSERIN TARTRATE
     Dosage: 34 MG, QD
     Route: 048
     Dates: start: 202005
  3. NUPLAZID [Suspect]
     Active Substance: PIMAVANSERIN TARTRATE
     Dosage: 34 MG, QD
     Route: 048
  4. NUPLAZID [Suspect]
     Active Substance: PIMAVANSERIN TARTRATE
     Dosage: 34 MG, QD
     Route: 048
  5. ALLOPURINOL [Concomitant]
     Active Substance: ALLOPURINOL
  6. ATORVASTATIN [Concomitant]
     Active Substance: ATORVASTATIN
  7. CARBIDOPA\LEVODOPA [Concomitant]
     Active Substance: CARBIDOPA\LEVODOPA
  8. CLONAZEPAM [Concomitant]
     Active Substance: CLONAZEPAM
  9. DONEPEZIL [Concomitant]
     Active Substance: DONEPEZIL
  10. FINASTERIDE [Concomitant]
     Active Substance: FINASTERIDE
  11. LATANOPROST [Concomitant]
     Active Substance: LATANOPROST
  12. MEMANTINE [Concomitant]
     Active Substance: MEMANTINE
  13. SERTRALINE [Concomitant]
     Active Substance: SERTRALINE HYDROCHLORIDE
  14. ALENDRONATE [Concomitant]
     Active Substance: ALENDRONATE SODIUM
  15. RIVASTIGMINE [Concomitant]
     Active Substance: RIVASTIGMINE
     Dosage: DIS 4.6MG/24
  16. BACITRACIN [Concomitant]
     Active Substance: BACITRACIN
     Dosage: 500/GM
  17. POLYMYXIN B [Concomitant]
     Active Substance: POLYMYXIN B
     Dosage: 500000
  18. ZINC [Concomitant]
     Active Substance: ZINC
     Dosage: 50 MILLIGRAM

REACTIONS (13)
  - Fall [Unknown]
  - Condition aggravated [Unknown]
  - Nonspecific reaction [Unknown]
  - Product dose omission issue [Recovered/Resolved]
  - Condition aggravated [Not Recovered/Not Resolved]
  - Product dose omission issue [Recovered/Resolved]
  - Bradykinesia [Not Recovered/Not Resolved]
  - Condition aggravated [Not Recovered/Not Resolved]
  - Dementia [Not Recovered/Not Resolved]
  - Product dose omission issue [Recovered/Resolved]
  - Urinary tract infection [Not Recovered/Not Resolved]
  - Condition aggravated [Recovered/Resolved]
  - Hallucination [Unknown]

NARRATIVE: CASE EVENT DATE: 20190601
